FAERS Safety Report 7552157-1 (Version None)
Quarter: 2011Q2

REPORT INFORMATION
  Report Type: 
  Country: None (occurrence: None)
  Receive Date: 20110616
  Receipt Date: 20110613
  Transmission Date: 20111010
  Serious: Yes (Disabling)
  Sender: FDA-Public Use
  Company Number: GB-MERCK-1101GBR00108

PATIENT
  Age: 70 Year
  Sex: Female
  Weight: 51 kg

DRUGS (10)
  1. JANUVIA [Suspect]
     Route: 048
     Dates: end: 20101231
  2. ACETAMINOPHEN AND CODEINE [Concomitant]
     Route: 065
     Dates: start: 20101210, end: 20110109
  3. PIOGLITAZONE HYDROCHLORIDE [Concomitant]
     Route: 065
     Dates: start: 20100920, end: 20101212
  4. TRIMETHOPRIM [Concomitant]
     Route: 065
     Dates: start: 20101210, end: 20101217
  5. CARBOMER [Concomitant]
     Route: 065
     Dates: start: 20100920, end: 20101221
  6. ESTRIOL [Concomitant]
     Route: 065
     Dates: start: 20101210, end: 20101211
  7. GLICLAZIDE [Concomitant]
     Route: 065
     Dates: start: 20100920, end: 20101221
  8. METFORMIN [Concomitant]
     Route: 065
     Dates: start: 20101015, end: 20101121
  9. CLOTRIMAZOLE [Concomitant]
     Route: 065
     Dates: start: 20101210, end: 20101224
  10. SIMVASTATIN [Concomitant]
     Route: 048
     Dates: start: 20100920, end: 20101221

REACTIONS (1)
  - TREMOR [None]
